FAERS Safety Report 19744007 (Version 1)
Quarter: 2021Q3

REPORT INFORMATION
  Report Type: Spontaneous
  Country: US (occurrence: US)
  Receive Date: 20210820
  Receipt Date: 20210820
  Transmission Date: 20211014
  Serious: No
  Sender: FDA-Public Use
  Company Number: None

PATIENT
  Sex: Male
  Weight: 84.7 kg

DRUGS (1)
  1. LENALIDOMIDE (CC?5013) [Suspect]
     Active Substance: LENALIDOMIDE
     Dates: start: 20160829, end: 20210606

REACTIONS (6)
  - Aortic stenosis [None]
  - Carotid artery stenosis [None]
  - Aphasia [None]
  - Facial paresis [None]
  - Dysarthria [None]
  - Cerebrovascular accident [None]
